FAERS Safety Report 13500579 (Version 2)
Quarter: 2017Q2

REPORT INFORMATION
  Report Type: Report from Study
  Country: US (occurrence: US)
  Receive Date: 20170501
  Receipt Date: 20170605
  Transmission Date: 20170830
  Serious: Yes (Hospitalization, Other)
  Sender: FDA-Public Use
  Company Number: US-REGENERON PHARMACEUTICALS, INC.-2017-14793

PATIENT

DRUGS (13)
  1. PREDNISONE. [Concomitant]
     Active Substance: PREDNISONE
     Indication: PRODUCT USED FOR UNKNOWN INDICATION
     Dosage: 5 MG MILLIGRAM(S), UNK
  2. LOTEMAX [Concomitant]
     Active Substance: LOTEPREDNOL ETABONATE
     Indication: PRODUCT USED FOR UNKNOWN INDICATION
     Dosage: 0.5 %, UNK
  3. ARCALYST [Suspect]
     Active Substance: RILONACEPT
     Indication: AUTOINFLAMMATORY DISEASE
     Dosage: 160 MG, LAST DOSE, SQ QWEEK
     Route: 058
     Dates: start: 20170512, end: 20170512
  4. ONDANSETRON [Concomitant]
     Active Substance: ONDANSETRON
     Indication: PRODUCT USED FOR UNKNOWN INDICATION
     Dosage: 4 MG MILLIGRAM(S), UNK
  5. GILDAGIA [Concomitant]
     Active Substance: ETHINYL ESTRADIOL\NORETHINDRONE
     Indication: PRODUCT USED FOR UNKNOWN INDICATION
     Dosage: 0.4 MG MILLIGRAM(S), UNK
  6. PEPCID [Concomitant]
     Active Substance: FAMOTIDINE
     Indication: PRODUCT USED FOR UNKNOWN INDICATION
     Dosage: 40 MG MILLIGRAM(S), UNK
  7. ANUCORT-HC [Concomitant]
     Active Substance: HYDROCORTISONE ACETATE
     Indication: PRODUCT USED FOR UNKNOWN INDICATION
     Dosage: 25 MG MILLIGRAM(S), UNK
  8. TYLENOL WITH CODEINE [Concomitant]
     Active Substance: ACETAMINOPHEN\CODEINE PHOSPHATE
     Indication: PRODUCT USED FOR UNKNOWN INDICATION
     Dosage: UNK
  9. DULOXETINE. [Concomitant]
     Active Substance: DULOXETINE
     Indication: PRODUCT USED FOR UNKNOWN INDICATION
     Dosage: 20 MG MILLIGRAM(S), UNK
  10. ARCALYST [Suspect]
     Active Substance: RILONACEPT
     Indication: POLYARTHRITIS
     Dosage: 160 MG MILLIGRAM(S), EVERY 6 DAYS
     Route: 058
     Dates: start: 201611
  11. ALBENZA [Concomitant]
     Active Substance: ALBENDAZOLE
     Indication: PRODUCT USED FOR UNKNOWN INDICATION
     Dosage: 200 MG MILLIGRAM(S), UNK
  12. ENDERM-GM [Concomitant]
     Indication: PRODUCT USED FOR UNKNOWN INDICATION
     Dosage: 100 MG MILLIGRAM(S), UNK
  13. NAPROXEN. [Concomitant]
     Active Substance: NAPROXEN
     Indication: PRODUCT USED FOR UNKNOWN INDICATION
     Dosage: 500 MG MILLIGRAM(S), UNK

REACTIONS (8)
  - Perforated ulcer [Unknown]
  - Drug dose omission [Unknown]
  - Gallbladder disorder [Unknown]
  - Post procedural complication [Recovering/Resolving]
  - Surgery [Recovered/Resolved]
  - Abdominal pain [Unknown]
  - Off label use [Not Recovered/Not Resolved]
  - Incorrect product storage [Unknown]

NARRATIVE: CASE EVENT DATE: 201610
